FAERS Safety Report 8807397 (Version 1)
Quarter: 2012Q4

REPORT INFORMATION
  Report Type: 
  Country: US (occurrence: US)
  Receive Date: 20120925
  Receipt Date: 20120925
  Transmission Date: 20130627
  Serious: No
  Sender: FDA-Public Use
  Company Number: US-MYLANLABS-2012S1004647

PATIENT
  Sex: Female

DRUGS (1)
  1. NITROGLYCERIN TRANSDERMAL SYSTEM [Suspect]
     Indication: CARDIAC DISORDER
     Dosage: 12 hours on and 12 hours off
     Route: 062
     Dates: start: 2011

REACTIONS (5)
  - Application site erosion [Recovered/Resolved]
  - Application site infection [Recovered/Resolved]
  - Incorrect drug administration duration [Recovered/Resolved]
  - Application site erythema [Recovering/Resolving]
  - Application site reaction [Recovering/Resolving]
